FAERS Safety Report 14538137 (Version 9)
Quarter: 2019Q3

REPORT INFORMATION
  Report Type: Spontaneous
  Country: US (occurrence: US)
  Receive Date: 20180216
  Receipt Date: 20190716
  Transmission Date: 20191004
  Serious: Yes (Other)
  Sender: FDA-Public Use
  Company Number: PHEH2018US006301

PATIENT
  Sex: Male

DRUGS (3)
  1. LENVATINIB [Suspect]
     Active Substance: LENVATINIB
     Dosage: 14 MG, QD
     Route: 048
     Dates: start: 20180131, end: 20190626
  2. AFINITOR [Suspect]
     Active Substance: EVEROLIMUS
     Indication: MALIGNANT NEOPLASM OF RENAL PELVIS
     Dosage: 5 MG, QD
     Route: 048
     Dates: start: 20180131, end: 20190626
  3. LENVATINIB [Suspect]
     Active Substance: LENVATINIB
     Indication: MALIGNANT NEOPLASM OF RENAL PELVIS
     Dosage: 18 MG, UNK
     Route: 048
     Dates: start: 201801

REACTIONS (14)
  - Epistaxis [Recovered/Resolved]
  - Rash [Recovering/Resolving]
  - Malignant neoplasm progression [Unknown]
  - Blood pressure abnormal [Recovered/Resolved]
  - Headache [Recovering/Resolving]
  - Renal function test abnormal [Unknown]
  - Dyspnoea [Recovering/Resolving]
  - Malignant neoplasm of renal pelvis [Unknown]
  - Pruritus [Recovering/Resolving]
  - Drug ineffective [Unknown]
  - Tinnitus [Recovering/Resolving]
  - Liver function test increased [Unknown]
  - Pain [Recovering/Resolving]
  - Muscle spasms [Unknown]
